FAERS Safety Report 7606976-3 (Version None)
Quarter: 2011Q3

REPORT INFORMATION
  Report Type: 
  Country: None (occurrence: None)
  Receive Date: 20110713
  Receipt Date: 20110622
  Transmission Date: 20111222
  Serious: No
  Sender: FDA-Public Use
  Company Number: US-B.I. PHARMACEUTICALS,INC./RIDGEFIELD-2011-BP-16151BP

PATIENT
  Sex: Female

DRUGS (5)
  1. ASTEPRO [Concomitant]
     Indication: NASAL CONGESTION
     Dates: start: 20110501
  2. PATANASE [Concomitant]
     Indication: NASAL CONGESTION
     Dates: start: 20110501
  3. PATANASE [Concomitant]
     Indication: DRY MOUTH
  4. ASTEPRO [Concomitant]
     Indication: DRY MOUTH
  5. MOBIC [Suspect]
     Indication: ARTHRITIS
     Dosage: 15 MG
     Route: 048

REACTIONS (2)
  - NASAL CONGESTION [None]
  - DRY MOUTH [None]
